FAERS Safety Report 18880442 (Version 1)
Quarter: 2021Q1

REPORT INFORMATION
  Report Type: Report from Study
  Country: JP (occurrence: JP)
  Receive Date: 20210211
  Receipt Date: 20210211
  Transmission Date: 20210420
  Serious: Yes (Other)
  Sender: FDA-Public Use
  Company Number: JP-PFIZER INC-2021133610

PATIENT
  Age: 82 Year
  Sex: Female

DRUGS (4)
  1. ENCORAFENIB [Suspect]
     Active Substance: ENCORAFENIB
     Indication: MALIGNANT MELANOMA
     Dosage: 450 MG
     Route: 048
     Dates: start: 20200511
  2. ENCORAFENIB [Suspect]
     Active Substance: ENCORAFENIB
     Dosage: UNK MG
     Route: 048
     Dates: start: 20200527, end: 202007
  3. BINIMETINIB [Suspect]
     Active Substance: BINIMETINIB
     Dosage: UNK MG
     Route: 048
     Dates: start: 20200527, end: 202007
  4. BINIMETINIB [Suspect]
     Active Substance: BINIMETINIB
     Indication: MALIGNANT MELANOMA
     Dosage: 45 MG
     Route: 048
     Dates: start: 20200511

REACTIONS (5)
  - Serous retinal detachment [Recovered/Resolved]
  - Vomiting [Unknown]
  - Blood lactate dehydrogenase increased [Recovered/Resolved]
  - Decreased appetite [Unknown]
  - Serous retinal detachment [Recovering/Resolving]

NARRATIVE: CASE EVENT DATE: 20200513
